FAERS Safety Report 15365217 (Version 2)
Quarter: 2018Q4

REPORT INFORMATION
  Report Type: Spontaneous
  Country: AU (occurrence: AU)
  Receive Date: 20180910
  Receipt Date: 20181109
  Transmission Date: 20190204
  Serious: Yes (Hospitalization, Other)
  Sender: FDA-Public Use
  Company Number: AU-B.I. PHARMACEUTICALS,INC./RIDGEFIELD-2018-BI-044914

PATIENT
  Sex: Female
  Weight: 64 kg

DRUGS (3)
  1. NOVORAPID [Concomitant]
     Active Substance: INSULIN ASPART
     Indication: TYPE 1 DIABETES MELLITUS
     Dosage: STRENGTH: 100 UNITS/ML
     Route: 065
  2. JARDIANCE [Suspect]
     Active Substance: EMPAGLIFLOZIN
     Indication: TYPE 1 DIABETES MELLITUS
     Route: 048
  3. LANTUS [Concomitant]
     Active Substance: INSULIN GLARGINE
     Indication: TYPE 1 DIABETES MELLITUS
     Dosage: 100 UNITS/ML
     Route: 065

REACTIONS (20)
  - Diabetic ketoacidosis [Recovered/Resolved]
  - Anxiety [Unknown]
  - Cough [Unknown]
  - Acute kidney injury [Recovered/Resolved]
  - Somnolence [Unknown]
  - Pyrexia [Unknown]
  - Abdominal distension [Unknown]
  - Malaise [Unknown]
  - Febrile infection [Unknown]
  - Pneumonia [Unknown]
  - Abdominal pain [Unknown]
  - Oedema peripheral [Unknown]
  - Decreased appetite [Unknown]
  - Off label use [Unknown]
  - Altered state of consciousness [Unknown]
  - Dyspnoea [Unknown]
  - Nausea [Unknown]
  - Cystitis [Unknown]
  - Lethargy [Unknown]
  - Constipation [Unknown]
